FAERS Safety Report 5174912-8 (Version None)
Quarter: 2006Q4

REPORT INFORMATION
  Report Type: 
  Country: None (occurrence: None)
  Receive Date: 20061206
  Receipt Date: 20061122
  Transmission Date: 20070319
  Serious: Yes (Death)
  Sender: FDA-Public Use
  Company Number: 2006145883

PATIENT
  Age: 18 Year
  Sex: Female

DRUGS (5)
  1. SOMATROPIN (SOMATROPIN) [Suspect]
     Indication: GROWTH RETARDATION
     Dosage: 1 MG; 2.2 MG
     Dates: end: 20050301
  2. SOMATROPIN (SOMATROPIN) [Suspect]
     Indication: GROWTH RETARDATION
     Dosage: 1 MG; 2.2 MG
     Dates: start: 20020101
  3. PREDNISONE TAB [Concomitant]
  4. CYCLOSPORINE [Concomitant]
  5. MYCOPHENOLATE MOFETIL [Concomitant]

REACTIONS (10)
  - ADENOCARCINOMA PANCREAS [None]
  - BILE DUCT CANCER [None]
  - BILE DUCT STENOSIS [None]
  - CHOLELITHIASIS [None]
  - CHOLESTASIS [None]
  - DIABETES MELLITUS [None]
  - DRUG RESISTANCE [None]
  - METASTASES TO LIVER [None]
  - METASTASES TO LYMPH NODES [None]
  - OBSTRUCTION [None]
